FAERS Safety Report 4751113-6 (Version None)
Quarter: 2005Q3

REPORT INFORMATION
  Report Type: 
  Country: None (occurrence: None)
  Receive Date: 20050823
  Receipt Date: 20050808
  Transmission Date: 20060218
  Serious: Yes (Death)
  Sender: FDA-Public Use
  Company Number: 2005S1004364

PATIENT
  Age: 54 Year
  Sex: Female

DRUGS (8)
  1. CLOZAPINE [Suspect]
     Indication: SCHIZOPHRENIA
     Dosage: SEE IMAGE
     Route: 048
     Dates: start: 20031001, end: 20050401
  2. CLOZAPINE [Suspect]
     Indication: SCHIZOPHRENIA
     Dosage: SEE IMAGE
     Route: 048
     Dates: start: 20031001, end: 20050401
  3. LORAZEPAM [Concomitant]
  4. BENZTROPINE MESYLATE [Concomitant]
  5. VALPROATE SODIUM [Concomitant]
  6. FOLIC ACID [Concomitant]
  7. LEVOTHYROXINE SODIUM [Concomitant]
  8. LITHIUM CARBONATE [Concomitant]

REACTIONS (1)
  - BRAIN NEOPLASM [None]
